FAERS Safety Report 8243677-5 (Version None)
Quarter: 2012Q1

REPORT INFORMATION
  Report Type: 
  Country: None (occurrence: None)
  Receive Date: 20120329
  Receipt Date: 20120315
  Transmission Date: 20120608
  Serious: Yes (Hospitalization)
  Sender: FDA-Public Use
  Company Number: IT-NOVEN-11IT003443

PATIENT
  Sex: Female

DRUGS (2)
  1. ZOLPIDEM [Concomitant]
     Indication: INSOMNIA
     Dosage: UNK
     Route: 065
  2. PAROXETINE HCL [Suspect]
     Indication: ANXIETY
     Dosage: 10 MG, QD
     Route: 048
     Dates: start: 20110720, end: 20110725

REACTIONS (2)
  - INTENTIONAL SELF-INJURY [None]
  - INSOMNIA [None]
